FAERS Safety Report 5942180-2 (Version None)
Quarter: 2008Q4

REPORT INFORMATION
  Report Type: 
  Country: None (occurrence: None)
  Receive Date: 20081104
  Receipt Date: 20081104
  Transmission Date: 20090506
  Serious: No
  Sender: FDA-Public Use
  Company Number: None

PATIENT
  Age: 59 Year
  Sex: Male

DRUGS (1)
  1. SORAFENIB [Suspect]
     Indication: RENAL CELL CARCINOMA
     Dosage: 400 MG BID PO
     Route: 048
     Dates: start: 20070327

REACTIONS (4)
  - CREPITATIONS [None]
  - DIARRHOEA [None]
  - FATIGUE [None]
  - PAIN IN EXTREMITY [None]
